FAERS Safety Report 13391533 (Version 1)
Quarter: 2017Q1

REPORT INFORMATION
  Report Type: Spontaneous
  Country: US (occurrence: US)
  Receive Date: 20170331
  Receipt Date: 20170331
  Transmission Date: 20170429
  Serious: Yes (Disabling)
  Sender: FDA-Public Use
  Company Number: None

PATIENT
  Age: 81 Year
  Sex: Male
  Weight: 90 kg

DRUGS (8)
  1. CARVEDILOL. [Suspect]
     Active Substance: CARVEDILOL
     Indication: EXTRASYSTOLES
     Dosage: ?          QUANTITY:1 TABLET(S);?
     Route: 048
     Dates: start: 20170221, end: 20170328
  2. LEVATHORAX [Concomitant]
  3. LORAZAPAM [Concomitant]
     Active Substance: LORAZEPAM
  4. DEGOXIN [Concomitant]
  5. OMAPRAZOL [Concomitant]
  6. ATARVARSTATIN [Concomitant]
  7. RANITIDINE. [Concomitant]
     Active Substance: RANITIDINE
  8. ASPERIN 81MG [Concomitant]

REACTIONS (1)
  - Confusional state [None]

NARRATIVE: CASE EVENT DATE: 20170327
